FAERS Safety Report 12294754 (Version 1)
Quarter: 2016Q2

REPORT INFORMATION
  Report Type: Spontaneous
  Country: US (occurrence: None)
  Receive Date: 20160421
  Receipt Date: 20160421
  Transmission Date: 20160815
  Serious: Yes (Hospitalization)
  Sender: FDA-Public Use
  Company Number: None

PATIENT
  Age: 84 Year
  Sex: Male
  Weight: 98.2 kg

DRUGS (2)
  1. SULFAMETHOXAZOLE/TRIMETHOPRIM [Suspect]
     Active Substance: SULFAMETHOXAZOLE\TRIMETHOPRIM
     Indication: LACERATION
     Route: 048
     Dates: start: 20160329, end: 20160407
  2. LISINOPRIL. [Suspect]
     Active Substance: LISINOPRIL
     Indication: HYPERTENSION
     Route: 048
     Dates: start: 19980420, end: 20160407

REACTIONS (5)
  - Blood urea increased [None]
  - Hyperkalaemia [None]
  - Similar reaction on previous exposure to drug [None]
  - Hypersensitivity [None]
  - Blood creatinine increased [None]

NARRATIVE: CASE EVENT DATE: 20160406
